FAERS Safety Report 19737788 (Version 2)
Quarter: 2021Q3

REPORT INFORMATION
  Report Type: Spontaneous
  Country: US (occurrence: US)
  Receive Date: 20210823
  Receipt Date: 20210906
  Transmission Date: 20211014
  Serious: Yes (Death, Other)
  Sender: FDA-Public Use
  Company Number: US-AMGEN-USASP2021127896

PATIENT

DRUGS (24)
  1. CYCLOPHOSPHAMIDE;DEXAMETHASONE;DOXORUBICIN;VINCRISTINE [Suspect]
     Active Substance: CYCLOPHOSPHAMIDE\DEXAMETHASONE\DOXORUBICIN\VINCRISTINE
     Indication: LYMPHOCYTIC LEUKAEMIA
  2. CYCLOPHOSPHAMIDE;DOXORUBICIN;ETOPOSIDE;PREDNISONE;VINCRISTINE [Suspect]
     Active Substance: CYCLOPHOSPHAMIDE\DOXORUBICIN\ETOPOSIDE\PREDNISONE\VINCRISTINE
     Indication: T-CELL TYPE ACUTE LEUKAEMIA
  3. CYCLOPHOSPHAMIDE;DOXORUBICIN;ETOPOSIDE;PREDNISONE;VINCRISTINE [Suspect]
     Active Substance: CYCLOPHOSPHAMIDE\DOXORUBICIN\ETOPOSIDE\PREDNISONE\VINCRISTINE
     Indication: T-CELL LYMPHOMA
  4. CYCLOPHOSPHAMIDE;DOXORUBICIN;ETOPOSIDE;PREDNISONE;VINCRISTINE [Suspect]
     Active Substance: CYCLOPHOSPHAMIDE\DOXORUBICIN\ETOPOSIDE\PREDNISONE\VINCRISTINE
     Indication: CHRONIC MYELOID LEUKAEMIA
  5. CIPROFLOXACIN. [Concomitant]
     Active Substance: CIPROFLOXACIN
     Indication: ANTIBIOTIC PROPHYLAXIS
     Dosage: 500 MILLIGRAM, BID
     Route: 048
  6. BLINATUMOMAB [Suspect]
     Active Substance: BLINATUMOMAB
     Indication: OFF LABEL USE
  7. CYCLOPHOSPHAMIDE;DEXAMETHASONE;DOXORUBICIN;VINCRISTINE [Suspect]
     Active Substance: CYCLOPHOSPHAMIDE\DEXAMETHASONE\DOXORUBICIN\VINCRISTINE
     Indication: T-CELL LYMPHOMA
  8. CYCLOPHOSPHAMIDE;DOXORUBICIN;ETOPOSIDE;PREDNISONE;VINCRISTINE [Suspect]
     Active Substance: CYCLOPHOSPHAMIDE\DOXORUBICIN\ETOPOSIDE\PREDNISONE\VINCRISTINE
     Indication: LYMPHOCYTIC LEUKAEMIA
  9. IMATINIB. [Concomitant]
     Active Substance: IMATINIB MESYLATE
     Indication: ACUTE LYMPHOCYTIC LEUKAEMIA
  10. BLINATUMOMAB [Suspect]
     Active Substance: BLINATUMOMAB
     Indication: T-CELL TYPE ACUTE LEUKAEMIA
     Dosage: UNK
     Route: 065
  11. CYCLOPHOSPHAMIDE;DEXAMETHASONE;DOXORUBICIN;VINCRISTINE [Suspect]
     Active Substance: CYCLOPHOSPHAMIDE\DEXAMETHASONE\DOXORUBICIN\VINCRISTINE
     Indication: CHRONIC MYELOID LEUKAEMIA
  12. CYCLOPHOSPHAMIDE;DOXORUBICIN;ETOPOSIDE;PREDNISONE;VINCRISTINE [Suspect]
     Active Substance: CYCLOPHOSPHAMIDE\DOXORUBICIN\ETOPOSIDE\PREDNISONE\VINCRISTINE
     Indication: ACUTE LYMPHOCYTIC LEUKAEMIA
  13. DASATINIB. [Concomitant]
     Active Substance: DASATINIB
     Indication: ACUTE LYMPHOCYTIC LEUKAEMIA
  14. CYTARABINE. [Concomitant]
     Active Substance: CYTARABINE
     Indication: PROPHYLAXIS
     Route: 037
  15. PEGFILGRASTIM [Suspect]
     Active Substance: PEGFILGRASTIM
     Indication: PROPHYLAXIS
     Dosage: 6 MILLIGRAM
     Route: 058
  16. CYCLOPHOSPHAMIDE;DEXAMETHASONE;DOXORUBICIN;VINCRISTINE [Suspect]
     Active Substance: CYCLOPHOSPHAMIDE\DEXAMETHASONE\DOXORUBICIN\VINCRISTINE
     Indication: B PRECURSOR TYPE ACUTE LEUKAEMIA
     Route: 065
  17. CYCLOPHOSPHAMIDE;DEXAMETHASONE;DOXORUBICIN;VINCRISTINE [Suspect]
     Active Substance: CYCLOPHOSPHAMIDE\DEXAMETHASONE\DOXORUBICIN\VINCRISTINE
     Indication: ACUTE LYMPHOCYTIC LEUKAEMIA
  18. CYCLOPHOSPHAMIDE;DEXAMETHASONE;DOXORUBICIN;VINCRISTINE [Suspect]
     Active Substance: CYCLOPHOSPHAMIDE\DEXAMETHASONE\DOXORUBICIN\VINCRISTINE
     Indication: T-CELL TYPE ACUTE LEUKAEMIA
  19. CYCLOPHOSPHAMIDE;DOXORUBICIN;ETOPOSIDE;PREDNISONE;VINCRISTINE [Suspect]
     Active Substance: CYCLOPHOSPHAMIDE\DOXORUBICIN\ETOPOSIDE\PREDNISONE\VINCRISTINE
     Indication: B PRECURSOR TYPE ACUTE LEUKAEMIA
     Route: 065
  20. PONATINIB [Concomitant]
     Active Substance: PONATINIB
  21. FLUCONAZOLE. [Concomitant]
     Active Substance: FLUCONAZOLE
     Indication: ANTIBIOTIC PROPHYLAXIS
     Dosage: 200 MILLIGRAM, QD
     Route: 048
  22. RITUXIMAB. [Suspect]
     Active Substance: RITUXIMAB
     Indication: ACUTE LYMPHOCYTIC LEUKAEMIA
     Route: 065
  23. METHOTREXATE. [Concomitant]
     Active Substance: METHOTREXATE
     Indication: PROPHYLAXIS
     Dosage: 12 MILLIGRAM
     Route: 037
  24. ACYCLOVIR [ACICLOVIR] [Concomitant]
     Active Substance: ACYCLOVIR
     Indication: ANTIBIOTIC PROPHYLAXIS
     Dosage: 400 MILLIGRAM, BID
     Route: 048

REACTIONS (10)
  - Disease progression [Fatal]
  - Death [Fatal]
  - Transplantation complication [Fatal]
  - Off label use [Unknown]
  - Acute lymphocytic leukaemia recurrent [Fatal]
  - Myelodysplastic syndrome [Unknown]
  - Sepsis [Fatal]
  - Infection [Fatal]
  - Haemorrhage intracranial [Fatal]
  - Minimal residual disease [Unknown]
